FAERS Safety Report 19268944 (Version 3)
Quarter: 2021Q2

REPORT INFORMATION
  Report Type: Spontaneous
  Country: US (occurrence: US)
  Receive Date: 20210517
  Receipt Date: 20210623
  Transmission Date: 20210717
  Serious: Yes (Other)
  Sender: FDA-Public Use
  Company Number: US-PFIZER INC-2021503933

PATIENT
  Age: 38 Year
  Sex: Male

DRUGS (4)
  1. ZIRABEV [Suspect]
     Active Substance: BEVACIZUMAB-BVZR
     Indication: CEREBROVASCULAR DISORDER
  2. ZIRABEV [Suspect]
     Active Substance: BEVACIZUMAB-BVZR
     Indication: RADIOTHERAPY
  3. ZIRABEV [Suspect]
     Active Substance: BEVACIZUMAB-BVZR
     Indication: METASTATIC MALIGNANT MELANOMA
     Dosage: 70 UNITS (3 100MG 4ML VIALS, 1 400MG 16ML VIALS)
  4. ZIRABEV [Suspect]
     Active Substance: BEVACIZUMAB-BVZR
     Indication: MALIGNANT MELANOMA

REACTIONS (2)
  - Necrosis [Unknown]
  - Off label use [Unknown]
